FAERS Safety Report 14536470 (Version 1)
Quarter: 2018Q1

REPORT INFORMATION
  Report Type: Spontaneous
  Country: US (occurrence: US)
  Receive Date: 20180215
  Receipt Date: 20180215
  Transmission Date: 20180509
  Serious: Yes (Hospitalization)
  Sender: FDA-Public Use
  Company Number: None

PATIENT
  Age: 84 Year
  Sex: Female
  Weight: 59.1 kg

DRUGS (12)
  1. ASPIRIN. [Suspect]
     Active Substance: ASPIRIN
     Indication: CORONARY ARTERY DISEASE
     Dosage: DATES OF USE - CHRONIC
     Route: 048
  2. FOSAMAX [Concomitant]
     Active Substance: ALENDRONATE SODIUM
  3. LIPITOR [Concomitant]
     Active Substance: ATORVASTATIN CALCIUM
  4. WARFARIN [Suspect]
     Active Substance: WARFARIN
     Indication: DEEP VEIN THROMBOSIS
     Dosage: DATES OF USE - CHRONIC?DOSE - 6MG - FREQUENCY MWF?DOSE - 4MG - FREQUENCY TTHSS?
     Route: 048
  5. CALCITRATE [Concomitant]
     Active Substance: CALCIUM CITRATE
  6. LASIX [Concomitant]
     Active Substance: FUROSEMIDE
  7. COREG [Concomitant]
     Active Substance: CARVEDILOL
  8. NEURONTIN [Concomitant]
     Active Substance: GABAPENTIN
  9. AMARYL [Concomitant]
     Active Substance: GLIMEPIRIDE
  10. GLUCOSAMINE [Concomitant]
     Active Substance: GLUCOSAMINE
  11. WARFARIN [Suspect]
     Active Substance: WARFARIN
     Indication: CORONARY ARTERY DISEASE
     Dosage: DATES OF USE - CHRONIC?DOSE - 6MG - FREQUENCY MWF?DOSE - 4MG - FREQUENCY TTHSS?
     Route: 048
  12. IMURAN [Concomitant]
     Active Substance: AZATHIOPRINE

REACTIONS (5)
  - Coagulopathy [None]
  - Hypotension [None]
  - Haemarthrosis [None]
  - Haemorrhagic anaemia [None]
  - Therapy cessation [None]

NARRATIVE: CASE EVENT DATE: 20170726
